FAERS Safety Report 24075107 (Version 2)
Quarter: 2024Q3

REPORT INFORMATION
  Report Type: Spontaneous
  Country: JP (occurrence: JP)
  Receive Date: 20240710
  Receipt Date: 20240716
  Transmission Date: 20241016
  Serious: Yes (Hospitalization, Other)
  Sender: BIOVITRUM
  Company Number: JP-BIOVITRUM-2024-JP-009520

PATIENT
  Age: 8 Decade
  Sex: Female

DRUGS (1)
  1. DOPTELET [Suspect]
     Active Substance: AVATROMBOPAG MALEATE
     Indication: Liver disorder
     Dosage: DOPTELET TABLETS 20 MG?ONCE PER DAY
     Route: 048

REACTIONS (1)
  - Portal vein thrombosis [Recovered/Resolved]
